FAERS Safety Report 10235151 (Version 2)
Quarter: 2014Q2

REPORT INFORMATION
  Report Type: Report from Study
  Country: IT (occurrence: IT)
  Receive Date: 20140613
  Receipt Date: 20140626
  Transmission Date: 20141212
  Serious: Yes (Hospitalization)
  Sender: FDA-Public Use
  Company Number: PHHO2014IT008205

PATIENT
  Sex: 0

DRUGS (5)
  1. FTY [Suspect]
     Indication: MULTIPLE SCLEROSIS
     Dates: start: 20140526, end: 20140603
  2. MACLADIN [Suspect]
     Indication: TONSILLITIS
     Dates: start: 20140521, end: 20140527
  3. OKI [Suspect]
     Indication: TONSILLITIS
     Dates: start: 20140521, end: 20140527
  4. GOLAMIXIN [Suspect]
     Indication: TONSILLITIS
     Dates: start: 20140521, end: 20140527
  5. INTERFERON BETA-1A [Concomitant]
     Dosage: 30 UG, ONE/WEEK
     Route: 030
     Dates: start: 20120406, end: 20140515

REACTIONS (1)
  - Hypersensitivity vasculitis [Recovering/Resolving]
